FAERS Safety Report 5740528-5 (Version None)
Quarter: 2008Q2

REPORT INFORMATION
  Report Type: 
  Country: None (occurrence: None)
  Receive Date: 20080516
  Receipt Date: 20080512
  Transmission Date: 20081010
  Serious: Yes (Other)
  Sender: FDA-Public Use
  Company Number: SE-JNJFOC-20080502259

PATIENT
  Age: 41 Year
  Sex: Male

DRUGS (3)
  1. RISPERDAL CONSTA [Suspect]
     Route: 030
  2. RISPERDAL CONSTA [Suspect]
     Indication: SCHIZOAFFECTIVE DISORDER
     Route: 030
  3. LITHIONIT [Concomitant]

REACTIONS (5)
  - MOVEMENT DISORDER [None]
  - MUSCLE RIGIDITY [None]
  - SEXUAL DYSFUNCTION [None]
  - VISUAL DISTURBANCE [None]
  - WEIGHT INCREASED [None]
